FAERS Safety Report 21784459 (Version 1)
Quarter: 2022Q4

REPORT INFORMATION
  Report Type: Spontaneous
  Country: US (occurrence: US)
  Receive Date: 20221227
  Receipt Date: 20221227
  Transmission Date: 20230112
  Serious: Yes (Hospitalization)
  Sender: FDA-Public Use
  Company Number: US-NAPPMUNDI-GBR-2022-0104030

PATIENT
  Age: 41 Year
  Sex: Female

DRUGS (2)
  1. MORPHINE SULFATE [Suspect]
     Active Substance: MORPHINE SULFATE
     Indication: Gastroenteritis
     Dosage: UNK
     Route: 065
     Dates: start: 2011
  2. HYDROMORPHONE HYDROCHLORIDE [Suspect]
     Active Substance: HYDROMORPHONE HYDROCHLORIDE
     Indication: Gastroenteritis
     Dosage: 4 MILLIGRAM, Q6H
     Route: 065
     Dates: start: 2011

REACTIONS (1)
  - Narcotic bowel syndrome [Recovering/Resolving]

NARRATIVE: CASE EVENT DATE: 20130101
